FAERS Safety Report 7503927-7 (Version None)
Quarter: 2011Q2

REPORT INFORMATION
  Report Type: 
  Country: None (occurrence: None)
  Receive Date: 20110518
  Receipt Date: 20110509
  Transmission Date: 20111010
  Serious: Yes (Other)
  Sender: FDA-Public Use
  Company Number: GGEL20110500590

PATIENT
  Sex: Female

DRUGS (5)
  1. TOPIRAMATE [Suspect]
     Dosage: 100 MILLIGRAM, 2 IN 1 D, ORAL
     Route: 048
     Dates: start: 20110301, end: 20110414
  2. IMIGRAN (SUMATRIPTAN) [Concomitant]
  3. DOMPERIDONE (DOMPERIDONE) [Concomitant]
  4. SUMATRIPTAN (SUMATRIPTAN) [Concomitant]
  5. MAXALT [Concomitant]

REACTIONS (4)
  - CEREBROVASCULAR ACCIDENT [None]
  - CONFUSIONAL STATE [None]
  - PARAESTHESIA [None]
  - AMNESIA [None]
